FAERS Safety Report 4615458-2 (Version None)
Quarter: 2005Q2

REPORT INFORMATION
  Report Type: 
  Country: None (occurrence: None)
  Receive Date: 20050311
  Receipt Date: 20041108
  Transmission Date: 20051028
  Serious: No
  Sender: FDA-Public Use
  Company Number: 2004-BP-08569BP

PATIENT
  Age: 74 Year
  Sex: Male

DRUGS (12)
  1. SPIRIVA [Suspect]
     Indication: CHRONIC OBSTRUCTIVE PULMONARY DISEASE
     Dosage: 18 MCG (18 MCG),IH
     Route: 055
     Dates: start: 20040909
  2. SPIRIVA [Suspect]
  3. ADVAIR DISKUS 100/50 [Concomitant]
  4. LANOXIN [Concomitant]
  5. FLOMAX [Concomitant]
  6. TRIAMTERENE (TRIAMTERENE) [Concomitant]
  7. VITAMINS (VITAMINS) [Concomitant]
  8. CALCIUM GLUCONATE [Concomitant]
  9. ZINC [Concomitant]
  10. OCUVITE (OCUVITE) [Concomitant]
  11. ACETYLSALICYLIC ACID SRT [Concomitant]
  12. COMBIVENT [Concomitant]

REACTIONS (2)
  - DRUG INEFFECTIVE [None]
  - DYSPNOEA EXACERBATED [None]
